FAERS Safety Report 9552700 (Version 1)
Quarter: 2013Q2

REPORT INFORMATION
  Report Type: Spontaneous
  Country: US (occurrence: None)
  Receive Date: 20130507
  Receipt Date: 20130507
  Transmission Date: 20140414
  Serious: Yes (Hospitalization)
  Sender: FDA-Public Use
  Company Number: PHEH2012US016175

PATIENT
  Age: 25 Year
  Sex: 0

DRUGS (1)
  1. TASIGNA [Suspect]
     Indication: CHRONIC MYELOID LEUKAEMIA
     Route: 048
     Dates: start: 201205, end: 201208

REACTIONS (1)
  - Pancreatitis [None]
